FAERS Safety Report 9467207 (Version 2)
Quarter: 2013Q4

REPORT INFORMATION
  Report Type: Spontaneous
  Country: GB (occurrence: GB)
  Receive Date: 20130821
  Receipt Date: 20131007
  Transmission Date: 20140711
  Serious: Yes (Hospitalization)
  Sender: FDA-Public Use
  Company Number: PHHY2013GB089235

PATIENT
  Age: 46 Year
  Sex: Male

DRUGS (3)
  1. CLOZAPINE [Suspect]
     Indication: SCHIZOPHRENIA
  2. CLOZAPINE [Suspect]
     Dosage: 400 MG, DAILY
  3. CLOZAPINE [Suspect]
     Dosage: 450 MG, DAILY

REACTIONS (5)
  - Schizophrenia [Not Recovered/Not Resolved]
  - Emotional distress [Unknown]
  - Speech disorder [Recovered/Resolved]
  - Salivary hypersecretion [Recovered/Resolved]
  - Drooling [Recovered/Resolved]
